FAERS Safety Report 21726169 (Version 1)
Quarter: 2022Q4

REPORT INFORMATION
  Report Type: Other
  Country: US (occurrence: US)
  Receive Date: 20221214
  Receipt Date: 20221214
  Transmission Date: 20230112
  Serious: No
  Sender: FDA-Public Use
  Company Number: US-NOVEN PHARMACEUTICALS, INC.-2022-NOV-US000525

PATIENT
  Sex: Female

DRUGS (1)
  1. ESTRADIOL [Suspect]
     Active Substance: ESTRADIOL
     Indication: Artificial menopause
     Dosage: 0.1 MG, UNKNOWN
     Route: 062
     Dates: start: 20220428, end: 20220429

REACTIONS (4)
  - Erythema [Recovered/Resolved]
  - Crying [Recovered/Resolved]
  - Tunnel vision [Recovered/Resolved]
  - Therapeutic product ineffective [Recovered/Resolved]

NARRATIVE: CASE EVENT DATE: 20220429
